FAERS Safety Report 10700873 (Version 1)
Quarter: 2014Q4

REPORT INFORMATION
  Report Type: Spontaneous
  Country: US (occurrence: None)
  Receive Date: 20141224
  Receipt Date: 20141224
  Transmission Date: 20150529
  Serious: Yes (Other)
  Sender: FDA-Public Use
  Company Number: PHEH2014US001249

PATIENT
  Age: 51 Year
  Sex: Male

DRUGS (1)
  1. CLOZARIL [Suspect]
     Active Substance: CLOZAPINE

REACTIONS (4)
  - White blood cell count increased [None]
  - Pneumonia [None]
  - Leukocytosis [None]
  - Neutrophil count increased [None]

NARRATIVE: CASE EVENT DATE: 20140114
